FAERS Safety Report 12463346 (Version 1)
Quarter: 2016Q2

REPORT INFORMATION
  Report Type: Spontaneous
  Country: US (occurrence: US)
  Receive Date: 20160614
  Receipt Date: 20160614
  Transmission Date: 20160815
  Serious: Yes (Other)
  Sender: FDA-Public Use
  Company Number: US-BRISTOL-MYERS SQUIBB COMPANY-BMS-2016-044929

PATIENT
  Age: 51 Year
  Sex: Male
  Weight: 113.83 kg

DRUGS (1)
  1. KENALOG-40 [Suspect]
     Active Substance: TRIAMCINOLONE ACETONIDE
     Indication: ARTHRALGIA
     Route: 042

REACTIONS (3)
  - Dermatitis [Unknown]
  - Fungal infection [Unknown]
  - Suspected transmission of an infectious agent via product [None]
